APPROVED DRUG PRODUCT: VANCOMYCIN HYDROCHLORIDE
Active Ingredient: VANCOMYCIN HYDROCHLORIDE
Strength: EQ 750MG BASE/VIAL
Dosage Form/Route: INJECTABLE;INJECTION
Application: A206616 | Product #001 | TE Code: AP
Applicant: HIKMA PHARMACEUTICALS
Approved: Oct 3, 2018 | RLD: No | RS: No | Type: RX